FAERS Safety Report 11641540 (Version 1)
Quarter: 2015Q4

REPORT INFORMATION
  Report Type: Report from Study
  Country: US (occurrence: US)
  Receive Date: 20151019
  Receipt Date: 20151019
  Transmission Date: 20160304
  Serious: Yes (Other)
  Sender: FDA-Public Use
  Company Number: US-ABBVIE-15K-163-1481375-00

PATIENT
  Age: 45 Year
  Sex: Female

DRUGS (3)
  1. HUMIRA [Suspect]
     Active Substance: ADALIMUMAB
     Indication: COLITIS ULCERATIVE
     Dosage: DAY 1 4 PENS CROHN^S STARTER KIT
     Route: 058
  2. HUMIRA [Suspect]
     Active Substance: ADALIMUMAB
     Dosage: TWO WEEKS LATER ON DAY 15, 2 PENS
     Route: 058
  3. MULTIVITAMIN [Concomitant]
     Active Substance: VITAMINS
     Indication: COLITIS ULCERATIVE

REACTIONS (1)
  - Haematochezia [Unknown]
